FAERS Safety Report 8857293 (Version 1)
Quarter: 2012Q4

REPORT INFORMATION
  Report Type: 
  Country: US (occurrence: US)
  Receive Date: 20121024
  Receipt Date: 20121024
  Transmission Date: 20130627
  Serious: No
  Sender: FDA-Public Use
  Company Number: US-BIOGENIDEC-2009BI008299

PATIENT
  Age: 55 Year
  Sex: Female

DRUGS (1)
  1. TYSABRI [Suspect]
     Indication: MULTIPLE SCLEROSIS
     Route: 042
     Dates: start: 20080606

REACTIONS (10)
  - Fall [Recovered/Resolved]
  - Ankle fracture [Unknown]
  - Dysgeusia [Recovered/Resolved]
  - Foot fracture [Not Recovered/Not Resolved]
  - Ligament rupture [Recovered/Resolved]
  - Hypoaesthesia [Recovered/Resolved]
  - Stress [Recovered/Resolved]
  - Wrist fracture [Recovered/Resolved]
  - Peroneal nerve palsy [Unknown]
  - Bunion [Not Recovered/Not Resolved]
